FAERS Safety Report 7004193-1 (Version None)
Quarter: 2010Q3

REPORT INFORMATION
  Report Type: 
  Country: None (occurrence: None)
  Receive Date: 20100920
  Receipt Date: 20100222
  Transmission Date: 20110219
  Serious: No
  Sender: FDA-Public Use
  Company Number: US-WYE-H13780210

PATIENT
  Sex: Female
  Weight: 74.91 kg

DRUGS (8)
  1. PRISTIQ [Suspect]
     Indication: DEPRESSION
     Route: 048
     Dates: start: 20100101
  2. ARICEPT [Concomitant]
  3. PLAQUENIL [Concomitant]
  4. VITAMIN D [Concomitant]
  5. ACTONEL [Concomitant]
  6. PROGESTERONE [Concomitant]
  7. CORTEF [Concomitant]
  8. FOLIC ACID [Concomitant]

REACTIONS (3)
  - BLOOD CORTICOTROPHIN INCREASED [None]
  - FATIGUE [None]
  - HOT FLUSH [None]
